FAERS Safety Report 9653274 (Version 1)
Quarter: 2013Q4

REPORT INFORMATION
  Report Type: Spontaneous
  Country: US (occurrence: US)
  Receive Date: 20131029
  Receipt Date: 20131029
  Transmission Date: 20140711
  Serious: No
  Sender: FDA-Public Use
  Company Number: US-009507513-1310USA013478

PATIENT
  Sex: Male

DRUGS (1)
  1. MIRALAX [Suspect]
     Indication: PRODUCT USED FOR UNKNOWN INDICATION
     Dosage: 4.25 G, QD
     Route: 048
     Dates: start: 2011

REACTIONS (3)
  - Constipation [Unknown]
  - Underdose [Unknown]
  - Incorrect drug administration duration [Unknown]
